FAERS Safety Report 6326301-8 (Version None)
Quarter: 2009Q3

REPORT INFORMATION
  Report Type: 
  Country: None (occurrence: None)
  Receive Date: 20090820
  Receipt Date: 20090817
  Transmission Date: 20100115
  Serious: Yes (Life-Threatening, Hospitalization)
  Sender: FDA-Public Use
  Company Number: 350105

PATIENT
  Age: 8 Month
  Sex: Male
  Weight: 6 kg

DRUGS (1)
  1. AMMONIUM CHLORIDE [Suspect]
     Indication: BLOOD CHLORIDE DECREASED
     Dosage: 10 MILLIEQUIVALENTS (Q 12 HOUR); INTRAVENOUS, 90 MILLIEQUIVALENTS, INTRAVENOUS
     Route: 042
     Dates: start: 20081028, end: 20081104

REACTIONS (5)
  - CARDIAC ARREST [None]
  - DRUG DISPENSING ERROR [None]
  - HYPERKALAEMIA [None]
  - METABOLIC ACIDOSIS [None]
  - RESPIRATORY DISTRESS [None]
